FAERS Safety Report 13926151 (Version 1)
Quarter: 2017Q3

REPORT INFORMATION
  Report Type: Spontaneous
  Country: US (occurrence: US)
  Receive Date: 20170831
  Receipt Date: 20170831
  Transmission Date: 20171127
  Serious: No
  Sender: FDA-Public Use
  Company Number: US-BAYER-2017-166642

PATIENT
  Age: 63 Year
  Sex: Male
  Weight: 81.63 kg

DRUGS (6)
  1. FISH OIL [Concomitant]
     Active Substance: FISH OIL
     Dosage: UNK
  2. JAMAICA SARSAPARILLA [Concomitant]
     Dosage: UNK
  3. CLARITIN [Suspect]
     Active Substance: LORATADINE
     Indication: NASOPHARYNGITIS
  4. SAW PALMETTO [Concomitant]
     Active Substance: HERBALS\SAW PALMETTO
     Dosage: UNK
  5. CLARITIN [Suspect]
     Active Substance: LORATADINE
     Indication: HYPERSENSITIVITY
     Dosage: 2 DF, UNK TOOK 2 6 HOURS APART
     Route: 048
     Dates: start: 20170828, end: 20170828
  6. VITAMIN C [Concomitant]
     Active Substance: ASCORBIC ACID
     Dosage: UNK

REACTIONS (2)
  - Extra dose administered [Unknown]
  - Feeling abnormal [None]
